FAERS Safety Report 4536769-5 (Version None)
Quarter: 2004Q4

REPORT INFORMATION
  Report Type: 
  Country: None (occurrence: None)
  Receive Date: 20041223
  Receipt Date: 20041216
  Transmission Date: 20050328
  Serious: Yes (Hospitalization)
  Sender: FDA-Public Use
  Company Number: PH-ROCHE-389488

PATIENT
  Age: 62 Year
  Sex: Female

DRUGS (2)
  1. CAPECITABINE [Suspect]
     Indication: BREAST CANCER
     Dosage: GIVEN DAILY FOR 14 DAYS WITH 7 DAYS REST
     Route: 048
     Dates: start: 20040908
  2. IXABEPILONE [Suspect]
     Indication: BREAST CANCER
     Dosage: 1 PER CYCLE
     Route: 042
     Dates: start: 20040908, end: 20041108

REACTIONS (10)
  - ASTHENIA [None]
  - DISORIENTATION [None]
  - HYPONATRAEMIA [None]
  - MUCOSAL INFLAMMATION [None]
  - NEUROPATHY PERIPHERAL [None]
  - NEUTROPENIA [None]
  - PALMAR-PLANTAR ERYTHRODYSAESTHESIA SYNDROME [None]
  - PNEUMONIA [None]
  - TACHYPNOEA [None]
  - THROMBOCYTOPENIA [None]
